FAERS Safety Report 9097411 (Version 1)
Quarter: 2013Q1

REPORT INFORMATION
  Report Type: Spontaneous
  Country: FR (occurrence: FR)
  Receive Date: 20130212
  Receipt Date: 20130212
  Transmission Date: 20140127
  Serious: Yes (Hospitalization, Congenital Anomaly, Other)
  Sender: FDA-Public Use
  Company Number: FR-RB-JP/980115/479

PATIENT
  Age: 0 None
  Sex: Male

DRUGS (1)
  1. SUBUTEX [Suspect]
     Indication: DRUG DEPENDENCE
     Dosage: UNKNOWN DOSING SETAILS
     Route: 064
     Dates: start: 1996, end: 19961013

REACTIONS (8)
  - Jaundice neonatal [Recovered/Resolved]
  - Movement disorder [Recovered/Resolved]
  - Tremor neonatal [Recovered/Resolved]
  - Drug withdrawal syndrome neonatal [Recovered/Resolved]
  - Hypertonia neonatal [Recovered/Resolved]
  - Hypospadias [Recovered/Resolved]
  - Hypoglycaemia neonatal [Recovered/Resolved]
  - Foetal exposure during pregnancy [Recovered/Resolved]
